FAERS Safety Report 9191435 (Version 2)
Quarter: 2013Q4

REPORT INFORMATION
  Report Type: Spontaneous
  Country: US (occurrence: US)
  Receive Date: 20130326
  Receipt Date: 20131118
  Transmission Date: 20140711
  Serious: No
  Sender: FDA-Public Use
  Company Number: US-ASTRAZENECA-2013SE10486

PATIENT
  Sex: Female

DRUGS (4)
  1. CRESTOR [Suspect]
     Indication: BLOOD CHOLESTEROL INCREASED
     Route: 048
  2. CRESTOR [Suspect]
     Indication: BLOOD CHOLESTEROL INCREASED
     Route: 048
  3. DIOVAN [Concomitant]
  4. ESTROGEN PATCH [Concomitant]

REACTIONS (8)
  - Malaise [Unknown]
  - Influenza [Unknown]
  - Adverse event [Unknown]
  - Abdominal discomfort [Unknown]
  - Headache [Unknown]
  - Nausea [Unknown]
  - Drug dose omission [Unknown]
  - Drug ineffective [Unknown]
